FAERS Safety Report 11663836 (Version 1)
Quarter: 2015Q4

REPORT INFORMATION
  Report Type: Spontaneous
  Country: US (occurrence: None)
  Receive Date: 20151026
  Receipt Date: 20151026
  Transmission Date: 20160304
  Serious: Yes (Life-Threatening, Hospitalization, Disabling, Other)
  Sender: FDA-Public Use
  Company Number: None

PATIENT
  Age: 31 Year
  Sex: Female
  Weight: 55.79 kg

DRUGS (5)
  1. PERCOCET [Concomitant]
     Active Substance: ACETAMINOPHEN\OXYCODONE HYDROCHLORIDE
  2. LO/OVRAL [Suspect]
     Active Substance: ETHINYL ESTRADIOL\NORGESTREL
     Indication: MENORRHAGIA
     Dosage: 1 PILL ONCE DAILY TAKEN BY MOUTH
     Route: 048
  3. AMBIEN [Concomitant]
     Active Substance: ZOLPIDEM TARTRATE
  4. TOPAMAX [Concomitant]
     Active Substance: TOPIRAMATE
  5. QUESTRAN POWDER MIX [Concomitant]

REACTIONS (11)
  - Cholecystitis [None]
  - Post cholecystectomy syndrome [None]
  - Quality of life decreased [None]
  - Discomfort [None]
  - Economic problem [None]
  - Scar [None]
  - Pain [None]
  - Hepatic adenoma [None]
  - Emotional disorder [None]
  - Post procedural bile leak [None]
  - Mental disorder [None]

NARRATIVE: CASE EVENT DATE: 20131230
